FAERS Safety Report 5670189-5 (Version None)
Quarter: 2008Q1

REPORT INFORMATION
  Report Type: 
  Country: None (occurrence: None)
  Receive Date: 20080312
  Receipt Date: 20080227
  Transmission Date: 20080703
  Serious: Yes (Other)
  Sender: FDA-Public Use
  Company Number: 2008000439

PATIENT
  Age: 57 Year
  Sex: Female

DRUGS (6)
  1. ERLOTINIB (ERLOTINIB HCI) (TABLET) (ERLOTINIB HCI) [Suspect]
     Indication: OVARIAN CANCER
     Dosage: QD, ORAL
     Route: 048
     Dates: start: 20070607
  2. ACETYLSALICYLIC ACID SRT [Concomitant]
  3. ZOLPIDEM TARTRATE [Concomitant]
  4. LYRICA [Suspect]
     Dates: start: 20060615
  5. PACLITAXEL [Suspect]
     Indication: OVARIAN CANCER
     Dates: start: 20060814, end: 20070419
  6. CARBOPLATIN [Suspect]
     Indication: OVARIAN CANCER
     Dates: start: 20060814, end: 20070419

REACTIONS (1)
  - CATARACT [None]
